FAERS Safety Report 18221394 (Version 1)
Quarter: 2020Q3

REPORT INFORMATION
  Report Type: Spontaneous
  Country: US (occurrence: US)
  Receive Date: 20200901
  Receipt Date: 20200901
  Transmission Date: 20201103
  Serious: Yes (Hospitalization, Other)
  Sender: FDA-Public Use
  Company Number: None

PATIENT
  Age: 62 Year
  Sex: Female
  Weight: 110.7 kg

DRUGS (18)
  1. IRON [Concomitant]
     Active Substance: IRON
  2. KENALOG [Concomitant]
     Active Substance: TRIAMCINOLONE ACETONIDE
  3. PREVACID [Concomitant]
     Active Substance: LANSOPRAZOLE
  4. SPRYCEL [Suspect]
     Active Substance: DASATINIB
     Indication: CHRONIC MYELOID LEUKAEMIA
     Route: 048
     Dates: start: 20200813
  5. LOPRESSOR [Concomitant]
     Active Substance: METOPROLOL TARTRATE
  6. MELOXICAM. [Concomitant]
     Active Substance: MELOXICAM
  7. LOSARTAN. [Concomitant]
     Active Substance: LOSARTAN
  8. FLUTICASONE. [Concomitant]
     Active Substance: FLUTICASONE
  9. TRAMADOL. [Concomitant]
     Active Substance: TRAMADOL
  10. VITAMIN B12 [Concomitant]
     Active Substance: CYANOCOBALAMIN
  11. FOLIC ACID. [Concomitant]
     Active Substance: FOLIC ACID
  12. VITAMIN C [Concomitant]
     Active Substance: ASCORBIC ACID
  13. ALBUTEROL HFA [Concomitant]
     Active Substance: ALBUTEROL SULFATE
  14. VITAMIN D3 [Concomitant]
     Active Substance: CHOLECALCIFEROL
  15. CLARITIN [Concomitant]
     Active Substance: LORATADINE
  16. GABAPENTIN. [Concomitant]
     Active Substance: GABAPENTIN
  17. LASIX [Concomitant]
     Active Substance: FUROSEMIDE
  18. ALLOPURINOL. [Concomitant]
     Active Substance: ALLOPURINOL

REACTIONS (4)
  - Pyrexia [None]
  - Urinary tract infection [None]
  - Diarrhoea [None]
  - Vomiting [None]

NARRATIVE: CASE EVENT DATE: 20200901
